FAERS Safety Report 25041394 (Version 1)
Quarter: 2025Q1

REPORT INFORMATION
  Report Type: Spontaneous
  Country: US (occurrence: None)
  Receive Date: 20250305
  Receipt Date: 20250305
  Transmission Date: 20250408
  Serious: No
  Sender: FDA-CTU
  Company Number: None

PATIENT
  Age: 51 Year
  Sex: Female

DRUGS (1)
  1. ZEPBOUND [Suspect]
     Active Substance: TIRZEPATIDE
     Indication: Weight control
     Route: 050
     Dates: start: 20250303

REACTIONS (3)
  - Product substitution issue [None]
  - Lymphadenopathy [None]
  - Lymphadenopathy [None]

NARRATIVE: CASE EVENT DATE: 20250304
